FAERS Safety Report 4317727-2 (Version None)
Quarter: 2004Q1

REPORT INFORMATION
  Report Type: 
  Country: None (occurrence: None)
  Receive Date: 20040315
  Receipt Date: 20040304
  Transmission Date: 20041129
  Serious: Yes (Death)
  Sender: FDA-Public Use
  Company Number: US-BRISTOL-MYERS SQUIBB COMPANY-12529897

PATIENT

DRUGS (2)
  1. VEPESID [Suspect]
     Indication: PROSTATE CANCER
     Dosage: EVERY 21 DAYS WITH 1 WEEK OFF
     Route: 048
  2. ESTRAMUSTINE [Suspect]
     Indication: PROSTATE CANCER
     Dosage: EVERY 21 DAYS WITH 1 WEEK OFF
     Route: 048

REACTIONS (1)
  - MYOCARDIAL INFARCTION [None]
